FAERS Safety Report 8957650 (Version 2)
Quarter: 2013Q1

REPORT INFORMATION
  Report Type: Spontaneous
  Country: GB (occurrence: GB)
  Receive Date: 20121211
  Receipt Date: 20130116
  Transmission Date: 20140127
  Serious: Yes (Death, Hospitalization)
  Sender: FDA-Public Use
  Company Number: GB-ELI_LILLY_AND_COMPANY-GB201211008472

PATIENT
  Age: 14 Year
  Sex: Female
  Weight: 84 kg

DRUGS (12)
  1. STRATTERA [Suspect]
     Indication: ATTENTION DEFICIT/HYPERACTIVITY DISORDER
     Dosage: 25 MG, QD
     Route: 048
     Dates: start: 20120901
  2. STRATTERA [Suspect]
     Dosage: 40 MG, QD
     Route: 048
  3. STRATTERA [Suspect]
     Dosage: 60 MG, QD
     Route: 048
  4. STRATTERA [Suspect]
     Dosage: 80 MG, QD
     Route: 048
  5. STRATTERA [Suspect]
     Dosage: 100 MG, QD
     Route: 048
     Dates: start: 20120929
  6. CONCERTA XL [Concomitant]
     Dosage: 72 MG, UNK
  7. RITALIN [Concomitant]
     Dosage: 10 MG, TID
     Dates: end: 20121019
  8. PHENERGAN [Concomitant]
     Indication: SLEEP DISORDER
     Dosage: 50 MG, EACH EVENING
  9. LORAZEPAM [Concomitant]
     Dosage: 1-2 MG , PRN
  10. FOLIC ACID [Concomitant]
     Dosage: 5 MG, QD
     Dates: start: 20121009
  11. ARIPIPRAZOLE [Concomitant]
     Dosage: 5 MG, QD
     Dates: start: 20121013, end: 20121015
  12. CIRCADIN [Concomitant]
     Indication: SLEEP DISORDER
     Dosage: 6 MG, EACH EVENING
     Dates: start: 20121026

REACTIONS (2)
  - Completed suicide [Fatal]
  - Haematocrit decreased [Unknown]
